FAERS Safety Report 9934796 (Version 1)
Quarter: 2014Q1

REPORT INFORMATION
  Report Type: Report from Study
  Country: BR (occurrence: BR)
  Receive Date: 20140228
  Receipt Date: 20140228
  Transmission Date: 20141002
  Serious: Yes (Hospitalization)
  Sender: FDA-Public Use
  Company Number: BR-BAYER-2014-029577

PATIENT
  Age: 29 Year
  Sex: Male

DRUGS (2)
  1. BETAFERON [Suspect]
     Indication: NEUROMYELITIS OPTICA
     Dosage: 0.5 ML, UNK
     Route: 058
     Dates: start: 201212, end: 201212
  2. BETAFERON [Suspect]
     Indication: NEUROMYELITIS OPTICA
     Dosage: 1 ML, QOD
     Dates: start: 201212, end: 201305

REACTIONS (8)
  - Spinal cord injury [Not Recovered/Not Resolved]
  - Headache [Recovered/Resolved]
  - Influenza [Recovered/Resolved]
  - Pyrexia [Recovered/Resolved]
  - Vision blurred [Recovered/Resolved]
  - Diarrhoea [Recovered/Resolved]
  - Pain [Recovered/Resolved]
  - Intentional drug misuse [None]
